FAERS Safety Report 6209401-2 (Version None)
Quarter: 2009Q2

REPORT INFORMATION
  Report Type: 
  Country: None (occurrence: None)
  Receive Date: 20090529
  Receipt Date: 20090521
  Transmission Date: 20091009
  Serious: Yes (Hospitalization, Other)
  Sender: FDA-Public Use
  Company Number: JP-MERCK-0905USA01890

PATIENT
  Age: 84 Year
  Sex: Male

DRUGS (3)
  1. PEPCID [Suspect]
     Route: 042
     Dates: start: 20090511, end: 20090512
  2. UNASYN (SULTAMICILLIN TOSYLATE) [Concomitant]
     Route: 042
  3. FIRSTCIN [Concomitant]
     Route: 042

REACTIONS (1)
  - VENTRICULAR FIBRILLATION [None]
